FAERS Safety Report 18137713 (Version 1)
Quarter: 2020Q3

REPORT INFORMATION
  Report Type: Spontaneous
  Country: IN (occurrence: IN)
  Receive Date: 20200811
  Receipt Date: 20200811
  Transmission Date: 20201103
  Serious: Yes (Hospitalization)
  Sender: FDA-Public Use
  Company Number: IN-PRINSTON PHARMACEUTICAL INC.-2020PRN00264

PATIENT
  Age: 44 Year
  Sex: Male

DRUGS (4)
  1. CLOPIDOGREL [Suspect]
     Active Substance: CLOPIDOGREL BISULFATE
     Indication: ANGINA UNSTABLE
     Dosage: UNK
     Route: 065
  2. NITRATE [Concomitant]
     Active Substance: UNSPECIFIED INGREDIENT
     Route: 065
  3. STATIN [Suspect]
     Active Substance: UNSPECIFIED INGREDIENT
     Indication: ANGINA UNSTABLE
     Route: 065
  4. BETA?BLOCKER [Concomitant]
     Active Substance: UNSPECIFIED INGREDIENT
     Route: 065

REACTIONS (4)
  - Haemolytic uraemic syndrome [Recovering/Resolving]
  - Thrombotic microangiopathy [Recovering/Resolving]
  - Drug interaction [Recovered/Resolved]
  - Renal failure [Recovering/Resolving]
